FAERS Safety Report 4275280-6 (Version None)
Quarter: 2004Q1

REPORT INFORMATION
  Report Type: 
  Country: None (occurrence: None)
  Receive Date: 20040116
  Receipt Date: 20040113
  Transmission Date: 20041129
  Serious: Yes (Hospitalization, Disabling)
  Sender: FDA-Public Use
  Company Number: HQ576912DEC2002

PATIENT
  Age: 50 Year
  Sex: Male

DRUGS (2)
  1. DIMETAPP [Suspect]
     Indication: NASAL CONGESTION
     Dosage: ORAL
     Route: 048
     Dates: start: 19991102, end: 19991110
  2. DIMETAPP [Suspect]
     Indication: NASOPHARYNGITIS
     Dosage: ORAL
     Route: 048
     Dates: start: 19991102, end: 19991110

REACTIONS (1)
  - CEREBROVASCULAR ACCIDENT [None]
